FAERS Safety Report 8786995 (Version 1)
Quarter: 2012Q4

REPORT INFORMATION
  Report Type: 
  Country: GB (occurrence: GB)
  Receive Date: 20120914
  Receipt Date: 20120914
  Transmission Date: 20130627
  Serious: Yes (Other)
  Sender: FDA-Public Use
  Company Number: PHHY2012GB079540

PATIENT
  Age: 7 Year
  Sex: Male
  Weight: 17.4 kg

DRUGS (7)
  1. CEFUROXIME [Suspect]
     Indication: HAEMOPHILUS INFECTION
     Dosage: 750 mg, UNK
     Route: 042
     Dates: start: 20120821, end: 20120827
  2. CEFUROXIME [Suspect]
     Dosage: 750 mg, UNK
     Route: 042
  3. AUGMENTIN-DUO [Concomitant]
     Dosage: 10 ml, BID
     Route: 048
     Dates: start: 20120820, end: 20120827
  4. AVAMYS [Concomitant]
     Dosage: 1 DF, QD
  5. MONTELUKAST [Concomitant]
     Dosage: 5 mg, QD
     Route: 048
  6. PULMOZYME [Concomitant]
     Dosage: 2.5 mg, QD
  7. SERETIDE [Concomitant]
     Dosage: 2 DF, QD

REACTIONS (8)
  - Aspartate aminotransferase increased [Recovering/Resolving]
  - C-reactive protein increased [Recovering/Resolving]
  - Pyrexia [Recovering/Resolving]
  - Muscle spasms [Recovering/Resolving]
  - Nausea [Recovering/Resolving]
  - Abdominal pain upper [Recovering/Resolving]
  - Abdominal pain [Recovering/Resolving]
  - Overdose [Unknown]
